FAERS Safety Report 20889690 (Version 1)
Quarter: 2022Q2

REPORT INFORMATION
  Report Type: Other
  Country: DE (occurrence: None)
  Receive Date: 20220530
  Receipt Date: 20220530
  Transmission Date: 20220721
  Serious: Yes (Hospitalization, Other)
  Sender: FDA-Public Use
  Company Number: DE-ROCHE-2735419

PATIENT
  Age: 26 Year
  Sex: Female

DRUGS (7)
  1. OCREVUS [Suspect]
     Active Substance: OCRELIZUMAB
     Indication: Relapsing-remitting multiple sclerosis
     Route: 042
     Dates: start: 20201207
  2. OCREVUS [Suspect]
     Active Substance: OCRELIZUMAB
     Route: 042
     Dates: start: 20210628
  3. COMIRNATY [Suspect]
     Active Substance: TOZINAMERAN
     Indication: COVID-19 prophylaxis
     Dosage: FIRST DOSE
     Route: 065
  4. COMIRNATY [Suspect]
     Active Substance: TOZINAMERAN
     Dosage: SECOND DOSE
     Route: 065
     Dates: start: 20210405
  5. COMIRNATY [Suspect]
     Active Substance: TOZINAMERAN
     Dosage: THIRD DOSE
     Route: 065
     Dates: start: 20210513
  6. LEVOTHYROXINE SODIUM [Concomitant]
     Active Substance: LEVOTHYROXINE SODIUM
  7. CITALOPRAM [Concomitant]
     Active Substance: CITALOPRAM HYDROBROMIDE
     Dosage: 0-0-1

REACTIONS (16)
  - Arrhythmia [Recovering/Resolving]
  - Fatigue [Recovered/Resolved]
  - Listless [Recovering/Resolving]
  - Headache [Recovered/Resolved]
  - Pyrexia [Recovered/Resolved]
  - Chills [Recovered/Resolved]
  - Lymphadenopathy [Recovered/Resolved]
  - SARS-CoV-2 antibody test negative [Unknown]
  - Trigeminal neuralgia [Recovered/Resolved]
  - Pyrexia [Recovered/Resolved]
  - Headache [Recovered/Resolved]
  - COVID-19 [Recovered/Resolved]
  - Pyelitis [Recovering/Resolving]
  - Back pain [Recovering/Resolving]
  - White blood cell count increased [Recovered/Resolved]
  - C-reactive protein increased [Recovering/Resolving]

NARRATIVE: CASE EVENT DATE: 20201207
